FAERS Safety Report 15172648 (Version 1)
Quarter: 2018Q3

REPORT INFORMATION
  Report Type: Report from Study
  Country: ES (occurrence: ES)
  Receive Date: 20180720
  Receipt Date: 20180720
  Transmission Date: 20181010
  Serious: Yes (Hospitalization, Other)
  Sender: FDA-Public Use
  Company Number: ES-TEVA-2018-ES-928983

PATIENT
  Age: 57 Year
  Sex: Female

DRUGS (6)
  1. LEDERFOLIN 15 MG COMPRIMIDOS, 10 COMPRIMIDOS [Concomitant]
     Dosage: 15 MILLIGRAM DAILY;
     Route: 048
     Dates: start: 201801
  2. PREDNISONA (886A) [Interacting]
     Active Substance: PREDNISONE
     Indication: RENAL TRANSPLANT
     Route: 048
     Dates: start: 20180119
  3. TACROLIMUS (2694A) [Suspect]
     Active Substance: TACROLIMUS
     Indication: RENAL TRANSPLANT
     Dosage: 2 MILLIGRAM DAILY;
     Route: 048
     Dates: start: 20180119
  4. BISOPROLOL (2328A) [Concomitant]
     Active Substance: BISOPROLOL
     Indication: HYPERTENSION
     Dosage: 2.5 MILLIGRAM DAILY;
     Route: 048
     Dates: start: 20121214
  5. TROMALYT 150, CAPSULAS DURAS DE LIBERACION PROLONGADA , 28 C?PSULAS [Concomitant]
     Indication: MYOCARDIAL ISCHAEMIA
     Dosage: 150 MILLIGRAM DAILY;
     Route: 048
     Dates: start: 20121214
  6. MICOFENOLATO SODIO (7330SO) [Interacting]
     Active Substance: MYCOPHENOLATE SODIUM
     Indication: RENAL TRANSPLANT
     Dosage: 1 GRAM DAILY;
     Route: 048
     Dates: start: 20180119

REACTIONS (2)
  - Drug interaction [Unknown]
  - Cytomegalovirus infection [Recovering/Resolving]

NARRATIVE: CASE EVENT DATE: 20180202
